FAERS Safety Report 19853070 (Version 4)
Quarter: 2021Q3

REPORT INFORMATION
  Report Type: Spontaneous
  Country: US (occurrence: US)
  Receive Date: 20210919
  Receipt Date: 20210924
  Transmission Date: 20211014
  Serious: Yes (Other)
  Sender: FDA-Public Use
  Company Number: US-SA-2021SA304363

PATIENT
  Sex: Male

DRUGS (2)
  1. TOUJEO MAX [Suspect]
     Active Substance: INSULIN GLARGINE
     Dosage: 45 UNITS AM/ 40 UNITS PM, Q12H
     Route: 065
  2. NOVOLOG [Concomitant]
     Active Substance: INSULIN ASPART
     Dosage: UNK
     Route: 065

REACTIONS (8)
  - Diabetes mellitus inadequate control [Recovered/Resolved]
  - Cataract [Unknown]
  - Drug ineffective [Recovered/Resolved]
  - Renal disorder [Unknown]
  - Visual impairment [Unknown]
  - Lacrimation increased [Unknown]
  - Inappropriate schedule of product administration [Unknown]
  - Product quality issue [Recovered/Resolved]

NARRATIVE: CASE EVENT DATE: 201901
